FAERS Safety Report 17200866 (Version 1)
Quarter: 2019Q4

REPORT INFORMATION
  Report Type: Spontaneous
  Country: FR (occurrence: FR)
  Receive Date: 20191226
  Receipt Date: 20191226
  Transmission Date: 20200122
  Serious: Yes (Hospitalization)
  Sender: FDA-Public Use
  Company Number: FR-NOVOPROD-702947

PATIENT
  Age: 71 Year
  Sex: Male
  Weight: 77.2 kg

DRUGS (11)
  1. FLUDEX [INDAPAMIDE] [Concomitant]
     Active Substance: INDAPAMIDE
  2. FELODIPINE. [Concomitant]
     Active Substance: FELODIPINE
  3. OZEMPIC [Suspect]
     Active Substance: SEMAGLUTIDE
     Indication: DIABETES MELLITUS
     Dosage: 1 DF, QW
     Route: 058
     Dates: start: 20190910
  4. ENANTONE [LEUPRORELIN] [Suspect]
     Active Substance: LEUPROLIDE ACETATE
     Indication: PROSTATE CANCER
     Dosage: 1 DF, 12 WEEK
     Route: 051
     Dates: start: 20191014, end: 20191014
  5. METFORMIN [Concomitant]
     Active Substance: METFORMIN HYDROCHLORIDE
  6. RILMENIDINE [Concomitant]
     Active Substance: RILMENIDINE
  7. SELOKEN L [Concomitant]
     Active Substance: METOPROLOL TARTRATE
  8. CASODEX [Suspect]
     Active Substance: BICALUTAMIDE
     Indication: PROSTATE CANCER
     Dosage: 1 DF QD
     Route: 048
     Dates: start: 20191002, end: 20191102
  9. EZETROL [Concomitant]
     Active Substance: EZETIMIBE
  10. ADENURIC [Concomitant]
     Active Substance: FEBUXOSTAT
  11. FOZITEC [FOSINOPRIL] [Concomitant]

REACTIONS (1)
  - Otitis media [Not Recovered/Not Resolved]

NARRATIVE: CASE EVENT DATE: 201910
